FAERS Safety Report 20159896 (Version 3)
Quarter: 2022Q1

REPORT INFORMATION
  Report Type: Spontaneous
  Country: FR (occurrence: FR)
  Receive Date: 20211208
  Receipt Date: 20220202
  Transmission Date: 20220423
  Serious: Yes (Other)
  Sender: FDA-Public Use
  Company Number: FR-NOVARTISPH-NVSC2021FR279297

PATIENT
  Sex: Female
  Weight: 55 kg

DRUGS (8)
  1. ADAKVEO [Suspect]
     Active Substance: CRIZANLIZUMAB-TMCA
     Indication: Product used for unknown indication
     Dosage: 1 DOSAGE FORM, QMO, TWO FLASKS (ROUNDED), 100MG/10 ML
     Route: 042
     Dates: start: 20210528, end: 20210528
  2. ADAKVEO [Suspect]
     Active Substance: CRIZANLIZUMAB-TMCA
     Dosage: 1 DOSAGE FORM, QMO, TWO FLASKS (ROUNDED), 100MG/10 ML
     Route: 042
     Dates: start: 20210611, end: 20210611
  3. ADAKVEO [Suspect]
     Active Substance: CRIZANLIZUMAB-TMCA
     Dosage: 1 DOSAGE FORM, QMO, TWO FLASKS (ROUNDED), 100MG/10 ML
     Route: 042
     Dates: start: 20210709, end: 20210709
  4. ADAKVEO [Suspect]
     Active Substance: CRIZANLIZUMAB-TMCA
     Dosage: 1 DOSAGE FORM, QMO, TWO FLASKS (ROUNDED), 100MG/10 ML
     Route: 042
     Dates: start: 20210806, end: 20210806
  5. ADAKVEO [Suspect]
     Active Substance: CRIZANLIZUMAB-TMCA
     Dosage: 1 DOSAGE FORM, QMO, TWO FLASKS (ROUNDED), 100MG/10 ML
     Route: 065
     Dates: start: 20210903, end: 20210903
  6. ADAKVEO [Suspect]
     Active Substance: CRIZANLIZUMAB-TMCA
     Dosage: 1 DOSAGE FORM, QMO, TWO FLASKS (ROUNDED), 100MG/10 ML
     Route: 042
     Dates: start: 20211001, end: 20211001
  7. ADAKVEO [Suspect]
     Active Substance: CRIZANLIZUMAB-TMCA
     Dosage: 1 DOSAGE FORM, QMO, TWO FLASKS (ROUNDED), 100MG/10 ML
     Route: 042
     Dates: start: 20211029, end: 20211029
  8. ADAKVEO [Suspect]
     Active Substance: CRIZANLIZUMAB-TMCA
     Dosage: 1 DOSAGE FORM, QMO, TWO FLASKS (ROUNDED), 100MG/10 ML
     Route: 042
     Dates: start: 20211126, end: 20211126

REACTIONS (5)
  - Acute chest syndrome [Recovered/Resolved]
  - Sickle cell anaemia with crisis [Unknown]
  - Bone pain [Recovered/Resolved]
  - Pain in extremity [Recovered/Resolved]
  - Drug ineffective [Recovered/Resolved]
